FAERS Safety Report 13519281 (Version 1)
Quarter: 2017Q2

REPORT INFORMATION
  Report Type: Report from Study
  Country: US (occurrence: US)
  Receive Date: 20170505
  Receipt Date: 20170505
  Transmission Date: 20170830
  Serious: Yes (Life-Threatening, Hospitalization, Other)
  Sender: FDA-Public Use
  Company Number: PHHO2014US021184

PATIENT
  Age: 9 Year
  Sex: Male
  Weight: 31 kg

DRUGS (11)
  1. NELARABINE [Suspect]
     Active Substance: NELARABINE
     Indication: T-CELL TYPE ACUTE LEUKAEMIA
     Dosage: 7250 MG, UNK
     Route: 042
     Dates: start: 20130520, end: 20130819
  2. CYCLOPHOSPHAMIDE. [Suspect]
     Active Substance: CYCLOPHOSPHAMIDE
     Indication: T-CELL TYPE ACUTE LEUKAEMIA
     Dosage: 1100 MG, UNK
     Route: 042
     Dates: start: 20130520, end: 20130822
  3. METHOTREXATE. [Suspect]
     Active Substance: METHOTREXATE
     Indication: T-CELL TYPE ACUTE LEUKAEMIA
     Dosage: 857 MG, UNK
     Route: 037
     Dates: start: 20130520, end: 20131211
  4. DAUNORUBICIN [Suspect]
     Active Substance: DAUNORUBICIN
     Indication: T-CELL TYPE ACUTE LEUKAEMIA
     Dosage: 112 MG, UNK
     Route: 042
     Dates: start: 20130520, end: 20130611
  5. VINCRISTINE SULPHATE [Suspect]
     Active Substance: VINCRISTINE SULFATE
     Indication: T-CELL TYPE ACUTE LEUKAEMIA
     Dosage: 25.9 MG, UNK
     Route: 042
     Dates: start: 20130520, end: 20131226
  6. PEGASPARGASE [Suspect]
     Active Substance: PEGASPARGASE
     Indication: T-CELL TYPE ACUTE LEUKAEMIA
     Dosage: 16250 IU, UNK
     Route: 042
     Dates: start: 20130520, end: 20131216
  7. MERCAPTOPURINE. [Suspect]
     Active Substance: MERCAPTOPURINE
     Indication: T-CELL TYPE ACUTE LEUKAEMIA
     Dosage: 1900 MG, UNK
     Route: 048
     Dates: start: 20130520, end: 20130826
  8. CYTARABINE. [Suspect]
     Active Substance: CYTARABINE
     Indication: T-CELL TYPE ACUTE LEUKAEMIA
     Dosage: 1414 MG, UNK
     Route: 037
     Dates: start: 20130520, end: 20130823
  9. DEXAMETHASONE. [Suspect]
     Active Substance: DEXAMETHASONE
     Indication: T-CELL TYPE ACUTE LEUKAEMIA
     Dosage: 140 MG, UNK
     Route: 048
     Dates: start: 20130520, end: 20140114
  10. DOXORUBICIN [Suspect]
     Active Substance: DOXORUBICIN
     Indication: T-CELL TYPE ACUTE LEUKAEMIA
     Dosage: 78 MG, UNK
     Route: 042
     Dates: start: 20130520, end: 20131216
  11. PREDNISONE. [Suspect]
     Active Substance: PREDNISONE
     Indication: T-CELL TYPE ACUTE LEUKAEMIA
     Dosage: 1848 MG, UNK
     Route: 048
     Dates: start: 20130520, end: 20130617

REACTIONS (2)
  - Histiocytosis haematophagic [Not Recovered/Not Resolved]
  - Second primary malignancy [Unknown]

NARRATIVE: CASE EVENT DATE: 20140625
